FAERS Safety Report 7582379-5 (Version None)
Quarter: 2011Q2

REPORT INFORMATION
  Report Type: 
  Country: None (occurrence: None)
  Receive Date: 20110623
  Receipt Date: 20110613
  Transmission Date: 20111010
  Serious: Yes (Other)
  Sender: FDA-Public Use
  Company Number: US-2011-10390

PATIENT
  Age: 36 Year
  Sex: Female

DRUGS (6)
  1. CYCLOSPORINE [Concomitant]
  2. FLUDARA [Suspect]
  3. BUSULFEX [Suspect]
     Dosage: 6.4 MG/KG, INTRAVENOUS
     Route: 042
  4. CYTARABINE [Concomitant]
  5. AMSACRINE (AMSACRINE) [Concomitant]
  6. MYCOPHENOLATE MEFETIL [Concomitant]

REACTIONS (3)
  - ACUTE GRAFT VERSUS HOST DISEASE IN INTESTINE [None]
  - CHRONIC MYELOMONOCYTIC LEUKAEMIA [None]
  - DISEASE RECURRENCE [None]
